FAERS Safety Report 24189124 (Version 1)
Quarter: 2024Q3

REPORT INFORMATION
  Report Type: Spontaneous
  Country: CN (occurrence: CN)
  Receive Date: 20240808
  Receipt Date: 20240808
  Transmission Date: 20241017
  Serious: Yes (Hospitalization, Other)
  Sender: BAXTER
  Company Number: None

PATIENT
  Age: 20 Year
  Sex: Male
  Weight: 53 kg

DRUGS (6)
  1. CYCLOPHOSPHAMIDE [Suspect]
     Active Substance: CYCLOPHOSPHAMIDE
     Indication: Acute lymphocytic leukaemia (in remission)
     Dosage: 1.2 G, ONE TIME IN ONE DAY, DILUTED WITH 0.9% SODIUM CHLORIDE INJECTION 500ML
     Route: 041
     Dates: start: 20240717, end: 20240717
  2. CYCLOPHOSPHAMIDE [Suspect]
     Active Substance: CYCLOPHOSPHAMIDE
     Indication: B-cell type acute leukaemia
  3. SODIUM CHLORIDE [Suspect]
     Active Substance: SODIUM CHLORIDE
     Indication: Medication dilution
     Dosage: 500 ML, ONE TIME IN ONE DAY, USED TO DILUTE CYTARABINE HYDROCHLORIDE FOR INJECTION 160MG
     Route: 041
     Dates: start: 20240717, end: 20240719
  4. SODIUM CHLORIDE [Suspect]
     Active Substance: SODIUM CHLORIDE
     Dosage: 500 ML, ONE TIME IN ONE DAY, USED TO DILUTE CYCLOPHOSPHAMIDE FOR INJECTION 1.2G
     Route: 041
     Dates: start: 20240717, end: 20240717
  5. CYTARABINE HYDROCHLORIDE [Suspect]
     Active Substance: CYTARABINE HYDROCHLORIDE
     Indication: Acute lymphocytic leukaemia (in remission)
     Dosage: 160 MG, ONE TIME IN ONE DAY, DILUTED WITH 0.9% SODIUM CHLORIDE INJECTION 500ML
     Route: 041
     Dates: start: 20240717, end: 20240719
  6. CYTARABINE HYDROCHLORIDE [Suspect]
     Active Substance: CYTARABINE HYDROCHLORIDE
     Indication: B-cell type acute leukaemia

REACTIONS (1)
  - Myelosuppression [Unknown]

NARRATIVE: CASE EVENT DATE: 20240724
